FAERS Safety Report 21390198 (Version 1)
Quarter: 2022Q3

REPORT INFORMATION
  Report Type: Report from Study
  Country: IE (occurrence: None)
  Receive Date: 20220929
  Receipt Date: 20220929
  Transmission Date: 20221027
  Serious: Yes (Death)
  Sender: FDA-Public Use
  Company Number: IE-Merck Healthcare KGaA-9354036

PATIENT
  Age: 74 Year
  Sex: Male

DRUGS (3)
  1. SAIZEN [Suspect]
     Active Substance: SOMATROPIN
     Indication: Product used for unknown indication
     Dosage: OFF THERAPY REASON: CHANGED TO LIQUID. CONSENTED ON: 21 JUL 2010 FOR FULL CONSENT
     Route: 058
     Dates: start: 20100729, end: 20120510
  2. SAIZEN [Suspect]
     Active Substance: SOMATROPIN
     Dosage: LIQUID CARTRIDGE, CONSENTED ON: 21 JUL 2010 FOR FULL CONSENT
     Route: 058
     Dates: start: 20120510
  3. SAIZEN [Suspect]
     Active Substance: SOMATROPIN
     Dosage: CONSENTED ON: 21 JUL 2010 FOR FULL CONSENT
     Route: 058
     Dates: start: 20150716

REACTIONS (2)
  - Death [Fatal]
  - Off label use [Unknown]

NARRATIVE: CASE EVENT DATE: 20210822
